FAERS Safety Report 23381613 (Version 2)
Quarter: 2024Q1

REPORT INFORMATION
  Report Type: Spontaneous
  Country: CA (occurrence: CA)
  Receive Date: 20240109
  Receipt Date: 20240124
  Transmission Date: 20240410
  Serious: Yes (Other)
  Sender: FDA-Public Use
  Company Number: CA-CELLTRION INC.-2024CA000360

PATIENT

DRUGS (6)
  1. INFLECTRA [Suspect]
     Active Substance: INFLIXIMAB-DYYB
     Indication: Psoriatic arthropathy
     Dosage: 400 MG, EVERY 8 WEEK
     Route: 042
     Dates: start: 20200513, end: 20201027
  2. INFLECTRA [Suspect]
     Active Substance: INFLIXIMAB-DYYB
     Dosage: 500 MG, EVERY 8 WEEK
     Route: 042
     Dates: start: 20201223
  3. INFLECTRA [Suspect]
     Active Substance: INFLIXIMAB-DYYB
     Dosage: 500 MG, ONE INFUSION
     Route: 042
     Dates: start: 20220207, end: 20220207
  4. INFLECTRA [Suspect]
     Active Substance: INFLIXIMAB-DYYB
     Dosage: 500 MG, EVERY 8 WEEK
     Route: 042
     Dates: start: 20231031
  5. METHOTREXATE [Concomitant]
     Active Substance: METHOTREXATE
     Dosage: 1 DF, 15 TO 20 MG WEEKLY - DISCONTINUED
     Route: 058
  6. METHOTREXATE [Concomitant]
     Active Substance: METHOTREXATE
     Dosage: 15 MG, WEEKLY
     Route: 048
     Dates: start: 202007

REACTIONS (2)
  - Immunosuppression [Unknown]
  - Fungal foot infection [Unknown]

NARRATIVE: CASE EVENT DATE: 20230101
